FAERS Safety Report 6344366-4 (Version None)
Quarter: 2009Q3

REPORT INFORMATION
  Report Type: 
  Country: None (occurrence: None)
  Receive Date: 20090908
  Receipt Date: 20090828
  Transmission Date: 20100115
  Serious: Yes (Other)
  Sender: FDA-Public Use
  Company Number: GB-ROCHE-653605

PATIENT
  Age: 32 Year
  Sex: Female

DRUGS (2)
  1. TAMIFLU [Suspect]
     Indication: DRUG USE FOR UNKNOWN INDICATION
     Route: 065
     Dates: start: 20090725, end: 20090730
  2. FEMODENE [Concomitant]

REACTIONS (1)
  - HYPERTHYROIDISM [None]
